FAERS Safety Report 8881908 (Version 1)
Quarter: 2012Q4

REPORT INFORMATION
  Report Type: 
  Country: DE (occurrence: IT)
  Receive Date: 20121102
  Receipt Date: 20121102
  Transmission Date: 20130627
  Serious: Yes (Hospitalization)
  Sender: FDA-Public Use
  Company Number: IT-BRISTOL-MYERS SQUIBB COMPANY-17091083

PATIENT

DRUGS (3)
  1. ERBITUX SOLN FOR INF [Suspect]
     Indication: HEAD AND NECK CANCER
     Dosage: 1DF:450 units nos
erbitux stopped and started on unknown date.
     Route: 042
     Dates: start: 20120914, end: 20120921
  2. CARBOPLATIN [Concomitant]
     Dosage: 1DF: AUC 4
     Route: 042
     Dates: start: 20120914, end: 20120914
  3. FLUOROURACIL [Concomitant]
     Dosage: 1DF:800 units nos
     Dates: start: 20120914, end: 20120917

REACTIONS (2)
  - Dyspnoea [Recovered/Resolved with Sequelae]
  - Vocal cord paralysis [Recovered/Resolved with Sequelae]
